FAERS Safety Report 11326244 (Version 1)
Quarter: 2015Q3

REPORT INFORMATION
  Report Type: Spontaneous
  Country: US (occurrence: US)
  Receive Date: 20150731
  Receipt Date: 20150731
  Transmission Date: 20151125
  Serious: No
  Sender: FDA-Public Use
  Company Number: US-ROCHE-1420902

PATIENT
  Sex: Female

DRUGS (8)
  1. PEGASYS [Suspect]
     Active Substance: PEGINTERFERON ALFA-2A
     Indication: HEPATITIS C
     Dosage: FOR APPROXIMATELY 4 MONTHS
     Route: 065
     Dates: start: 2004
  2. PEGASYS [Suspect]
     Active Substance: PEGINTERFERON ALFA-2A
     Dosage: FOR APPROXIMATELY 12 WEEKS
     Route: 065
     Dates: start: 2011
  3. RIBAVIRIN. [Suspect]
     Active Substance: RIBAVIRIN
     Indication: HEPATITIS C
     Dosage: FOR APPROXIMATELY 4 MONTHS
     Route: 065
     Dates: start: 2004
  4. VICTRELIS [Suspect]
     Active Substance: BOCEPREVIR
     Indication: PRODUCT USED FOR UNKNOWN INDICATION
     Dosage: FOR APPROXIMATELY 12 WEEKS
     Route: 065
     Dates: start: 2011
  5. RIBAVIRIN. [Suspect]
     Active Substance: RIBAVIRIN
     Dosage: FOR APPROXIMATELY 12 WEEKS
     Route: 065
     Dates: start: 2011
  6. RIBAVIRIN. [Suspect]
     Active Substance: RIBAVIRIN
     Dosage: DIVIDED DOSES ORALLY: 400/400 FOR 12 WEEK LENGTH OF TREATMENT
     Route: 048
     Dates: start: 20140203
  7. PEGASYS [Suspect]
     Active Substance: PEGINTERFERON ALFA-2A
     Route: 058
     Dates: start: 20140203
  8. SOVALDI [Suspect]
     Active Substance: SOFOSBUVIR
     Indication: HEPATITIS C
     Dosage: 12 WEEK LENGTH OF TREATMENT
     Route: 065
     Dates: start: 20140203

REACTIONS (2)
  - Pruritus [Recovering/Resolving]
  - Rash [Not Recovered/Not Resolved]
